FAERS Safety Report 9415132 (Version 1)
Quarter: 2013Q3

REPORT INFORMATION
  Report Type: Spontaneous
  Country: US (occurrence: US)
  Receive Date: 20130723
  Receipt Date: 20130723
  Transmission Date: 20140515
  Serious: Yes (Hospitalization)
  Sender: FDA-Public Use
  Company Number: US-JNJFOC-20130705881

PATIENT
  Age: 33 Year
  Sex: Male

DRUGS (7)
  1. INVEGA [Suspect]
     Indication: SCHIZOAFFECTIVE DISORDER
     Route: 065
     Dates: start: 2010, end: 201210
  2. INVEGA [Suspect]
     Indication: SCHIZOPHRENIA
     Route: 065
     Dates: start: 2010, end: 201210
  3. RISPERDAL [Suspect]
     Indication: SCHIZOAFFECTIVE DISORDER
     Route: 048
     Dates: start: 2004, end: 2010
  4. RISPERDAL [Suspect]
     Indication: SCHIZOPHRENIA
     Route: 048
     Dates: start: 2004, end: 2010
  5. RISPERIDONE [Suspect]
     Indication: PRODUCT USED FOR UNKNOWN INDICATION
     Route: 065
  6. ALPRAZOLAM [Concomitant]
     Indication: ANXIETY
     Route: 048
     Dates: start: 2013
  7. CLONAZEPAM [Concomitant]
     Indication: ANXIETY
     Dosage: UPTO 3 TIMES DAILY AS NEEDED
     Route: 048
     Dates: start: 2012, end: 2013

REACTIONS (5)
  - Psychotic disorder [Unknown]
  - Suicide attempt [Recovered/Resolved]
  - Weight increased [Not Recovered/Not Resolved]
  - Affective disorder [Not Recovered/Not Resolved]
  - Therapy cessation [Recovered/Resolved]
